FAERS Safety Report 9111000 (Version 1)
Quarter: 2013Q1

REPORT INFORMATION
  Report Type: Spontaneous
  Country: US (occurrence: US)
  Receive Date: 20130219
  Receipt Date: 20130219
  Transmission Date: 20140127
  Serious: No
  Sender: FDA-Public Use
  Company Number: US-BRISTOL-MYERS SQUIBB COMPANY-16862484

PATIENT
  Age: 49 Year
  Sex: Female
  Weight: 82.99 kg

DRUGS (1)
  1. ABATACEPT SUBQ INJECTION 125MG/ML [Suspect]
     Indication: RHEUMATOID ARTHRITIS
     Dosage: PRESCRIPTION #: 2328631,INTRP + RESTR ON MAY12,LAST INF ON 10AUG12;IV ON 27AUG2012
     Route: 058

REACTIONS (2)
  - Nasopharyngitis [Unknown]
  - Chronic obstructive pulmonary disease [Unknown]
